FAERS Safety Report 23297770 (Version 1)
Quarter: 2023Q4

REPORT INFORMATION
  Report Type: Spontaneous
  Country: FR (occurrence: FR)
  Receive Date: 20231214
  Receipt Date: 20231214
  Transmission Date: 20240110
  Serious: Yes (Life-Threatening, Other)
  Sender: FDA-Public Use
  Company Number: FR-AFSSAPS-AM2023001048

PATIENT
  Age: 61 Year
  Sex: Female

DRUGS (6)
  1. ACETAMINOPHEN [Suspect]
     Active Substance: ACETAMINOPHEN
     Indication: General anaesthesia
     Dosage: 1000 MILLIGRAM
     Route: 042
     Dates: start: 20230109, end: 20230109
  2. IBUPROFEN [Suspect]
     Active Substance: IBUPROFEN
     Indication: General anaesthesia
     Dosage: 200 MICROGRAM, 1 TOTAL
     Route: 042
     Dates: start: 20230109, end: 20230109
  3. DROPERIDOL [Suspect]
     Active Substance: DROPERIDOL
     Indication: General anaesthesia
     Dosage: 2.5 MILLIGRAM
     Route: 042
     Dates: start: 20230109, end: 20230109
  4. ETOMIDATE [Suspect]
     Active Substance: ETOMIDATE
     Indication: General anaesthesia
     Dosage: 40 MILLIGRAM
     Route: 042
     Dates: start: 20230109, end: 20230109
  5. METHYLENE BLUE [Suspect]
     Active Substance: METHYLENE BLUE
     Indication: Polypectomy
     Dosage: UNK
     Route: 065
     Dates: start: 20230109, end: 20230109
  6. PROPOFOL LIPURO [Suspect]
     Active Substance: PROPOFOL
     Indication: General anaesthesia
     Dosage: 100 MILLIGRAM
     Route: 042
     Dates: start: 20230109, end: 20230109

REACTIONS (1)
  - Anaphylactic shock [Recovered/Resolved]

NARRATIVE: CASE EVENT DATE: 20230109
